FAERS Safety Report 7067859-3 (Version None)
Quarter: 2010Q4

REPORT INFORMATION
  Report Type: 
  Country: None (occurrence: None)
  Receive Date: 20101028
  Receipt Date: 20101021
  Transmission Date: 20110411
  Serious: Yes (Death)
  Sender: FDA-Public Use
  Company Number: FR-PFIZER INC-2010129791

PATIENT
  Age: 79 Year
  Sex: Female
  Weight: 103 kg

DRUGS (10)
  1. ARGATROBAN [Suspect]
     Indication: HEPARIN-INDUCED THROMBOCYTOPENIA
     Dosage: 576 UG/KG (0.4 UG/KG,1 IN 1 MIN)
     Route: 042
     Dates: start: 20100922
  2. FLUCONAZOLE [Concomitant]
     Indication: FUNGAL INFECTION
     Dosage: 400 MG, 1X/DAY
     Route: 042
     Dates: end: 20101009
  3. FLUCONAZOLE [Concomitant]
     Indication: ANTIFUNGAL TREATMENT
  4. TARGOCID [Concomitant]
     Indication: STAPHYLOCOCCAL INFECTION
     Dosage: 200 MG, 2X/DAY
     Route: 042
     Dates: start: 20100923, end: 20101009
  5. INIPOMP [Concomitant]
     Indication: GASTRITIS PROPHYLAXIS
     Dosage: 40 MG, 1X/DAY
     Route: 042
     Dates: start: 20100924, end: 20101009
  6. ASPEGIC 1000 [Concomitant]
     Indication: ANTICOAGULANT THERAPY
     Dosage: 100 MG, 1X/DAY
     Route: 042
     Dates: start: 20100926, end: 20101009
  7. PIPERACILLIN AND TAZOBACTAM [Concomitant]
     Indication: LUNG DISORDER
     Dosage: 4 G, 2X/DAY
     Route: 042
     Dates: start: 20100916, end: 20101009
  8. GLUCIDION [Concomitant]
     Indication: INFUSION
     Dosage: 250 ML, CONTINUOUS
     Route: 042
     Dates: start: 20100923, end: 20101009
  9. NORADRENALINE [Concomitant]
     Indication: HYPOTENSION
     Dosage: 0.03 UG/KG/MIN CONTINUOUS
     Route: 042
     Dates: start: 20101004, end: 20101009
  10. CHINOMILLE [Concomitant]
     Indication: MEDICAL DIET
     Dosage: 1000 ML, CONTINUOUS
     Route: 042
     Dates: start: 20101004, end: 20101009

REACTIONS (1)
  - SEPSIS [None]
